FAERS Safety Report 8780232 (Version 1)
Quarter: 2012Q4

REPORT INFORMATION
  Report Type: Spontaneous
  Country: US (occurrence: None)
  Receive Date: 20120904
  Receipt Date: 20120904
  Transmission Date: 20130627
  Serious: No
  Sender: FDA-Public Use
  Company Number: None

PATIENT
  Age: 40 Year
  Sex: Male

DRUGS (1)
  1. PROZAC [Suspect]
     Route: 048

REACTIONS (3)
  - Abdominal discomfort [None]
  - Depression [None]
  - Product substitution issue [None]
